FAERS Safety Report 23230616 (Version 1)
Quarter: 2023Q4

REPORT INFORMATION
  Report Type: Spontaneous
  Country: US (occurrence: None)
  Receive Date: 20231123
  Receipt Date: 20231123
  Transmission Date: 20240110
  Serious: Yes (unspecified)
  Sender: FDA-Public Use
  Company Number: None

PATIENT
  Age: 83 Year
  Sex: Male
  Weight: 81 kg

DRUGS (7)
  1. DRY EYE RELIEF NOS [Suspect]
     Active Substance: UNSPECIFIED INGREDIENT
  2. TAMSULOSIN [Concomitant]
     Active Substance: TAMSULOSIN
  3. TESTOSTERONE [Concomitant]
     Active Substance: TESTOSTERONE
  4. VITAMINS [Concomitant]
     Active Substance: VITAMINS
  5. VITAMIN B12 [Concomitant]
     Active Substance: CYANOCOBALAMIN
  6. DIETARY SUPPLEMENT [Concomitant]
     Active Substance: DIETARY SUPPLEMENT
  7. LOSARTAN [Concomitant]

REACTIONS (3)
  - Eye swelling [None]
  - Eye infection [None]
  - Vision blurred [None]

NARRATIVE: CASE EVENT DATE: 20230820
